FAERS Safety Report 20044793 (Version 1)
Quarter: 2021Q4

REPORT INFORMATION
  Report Type: Spontaneous
  Country: CN (occurrence: CN)
  Receive Date: 20211108
  Receipt Date: 20211108
  Transmission Date: 20220303
  Serious: Yes (Other)
  Sender: FDA-Public Use
  Company Number: CN-PFIZER INC-202101454636

PATIENT
  Age: 89 Year
  Sex: Male

DRUGS (2)
  1. PIPERACILLIN SODIUM\TAZOBACTAM SODIUM [Suspect]
     Active Substance: PIPERACILLIN SODIUM\TAZOBACTAM SODIUM
     Indication: Anti-infective therapy
     Dosage: 3 G, 2X/DAY
     Route: 041
  2. SODIUM CHLORIDE [Suspect]
     Active Substance: SODIUM CHLORIDE
     Indication: Anti-infective therapy
     Dosage: 40 ML, 2X/DAY
     Route: 041

REACTIONS (1)
  - Pneumonia fungal [Unknown]

NARRATIVE: CASE EVENT DATE: 20210907
